FAERS Safety Report 7528085-4 (Version None)
Quarter: 2011Q2

REPORT INFORMATION
  Report Type: 
  Country: None (occurrence: None)
  Receive Date: 20110517
  Receipt Date: 20100614
  Transmission Date: 20111010
  Serious: Yes (Other)
  Sender: FDA-Public Use
  Company Number: WWISSUE-448

PATIENT
  Sex: Female

DRUGS (1)
  1. DOXYCYCLINE HYCLATE [Suspect]
     Indication: SKIN DISORDER
     Dosage: 100MG, ORAL
     Route: 048
     Dates: start: 20100201, end: 20100301

REACTIONS (3)
  - RASH MACULAR [None]
  - RASH [None]
  - ECZEMA [None]
